FAERS Safety Report 17064708 (Version 6)
Quarter: 2022Q2

REPORT INFORMATION
  Report Type: Spontaneous
  Country: US (occurrence: US)
  Receive Date: 20191122
  Receipt Date: 20220502
  Transmission Date: 20220720
  Serious: No
  Sender: FDA-Public Use
  Company Number: US-PFIZER INC-2019062352

PATIENT
  Age: 59 Year
  Sex: Male

DRUGS (1)
  1. LYRICA [Suspect]
     Active Substance: PREGABALIN
     Indication: Fibromyalgia
     Dosage: 450 MG, DAILY (TAKE 1 CAP BY MOUTH IN AM +2 CAPS BY MOUTH IN PM)
     Route: 048
     Dates: start: 20210506

REACTIONS (1)
  - Pain [Unknown]
